FAERS Safety Report 4430300-0 (Version None)
Quarter: 2004Q3

REPORT INFORMATION
  Report Type: 
  Country: None (occurrence: None)
  Receive Date: 20040817
  Receipt Date: 20040804
  Transmission Date: 20050211
  Serious: Yes (Life-Threatening)
  Sender: FDA-Public Use
  Company Number: OMPQ-NO-0407S-0817

PATIENT
  Age: 60 Year
  Sex: Female
  Weight: 38 kg

DRUGS (5)
  1. OMNIPAQUE 180 [Suspect]
     Indication: BILE DUCT CANCER
     Dosage: 90 ML, SINGLE DOSE, I.A.
     Route: 013
     Dates: start: 20040705, end: 20040705
  2. OMNIPAQUE 180 [Suspect]
     Indication: HEPATIC EMBOLISATION
     Dosage: 90 ML, SINGLE DOSE, I.A.
     Route: 013
     Dates: start: 20040705, end: 20040705
  3. THROMBIN [Concomitant]
  4. ABSORABLE GELATIN SPONGE (GELFOAM) [Concomitant]
  5. AMIKACIN SULFATE [Concomitant]

REACTIONS (11)
  - BLOOD PRESSURE DECREASED [None]
  - DISSEMINATED INTRAVASCULAR COAGULATION [None]
  - FLUID RETENTION [None]
  - GASTRIC HAEMORRHAGE [None]
  - HAEMATURIA [None]
  - HAEMOBILIA [None]
  - HAEMOLYSIS [None]
  - HAEMORRHAGE [None]
  - INTRA-ABDOMINAL HAEMORRHAGE [None]
  - POST PROCEDURAL HAEMORRHAGE [None]
  - SHOCK [None]
